FAERS Safety Report 8499815-2 (Version None)
Quarter: 2012Q3

REPORT INFORMATION
  Report Type: 
  Country: None (occurrence: None)
  Receive Date: 20120710
  Receipt Date: 20120629
  Transmission Date: 20120928
  Serious: Yes (Other)
  Sender: FDA-Public Use
  Company Number: IE-UCBSA-058972

PATIENT
  Age: 11 Year
  Sex: Male

DRUGS (2)
  1. KEPPRA [Suspect]
     Indication: EPILEPSY
     Dosage: DRUG DOSE: ONE AND A HALF TABLETS OF KEPPRA 250 MG TWICE A DAY
     Route: 048
     Dates: start: 20120414
  2. VENTOLIN [Concomitant]
     Indication: ASTHMA
     Dosage: FORM: INHALER
     Route: 055
     Dates: start: 20111102

REACTIONS (1)
  - ALOPECIA TOTALIS [None]
